FAERS Safety Report 12783002 (Version 1)
Quarter: 2016Q3

REPORT INFORMATION
  Report Type: Spontaneous
  Country: US (occurrence: US)
  Receive Date: 20160926
  Receipt Date: 20160926
  Transmission Date: 20161109
  Serious: Yes (Other)
  Sender: FDA-Public Use
  Company Number: None

PATIENT
  Age: 68 Year
  Sex: Female
  Weight: 96.75 kg

DRUGS (10)
  1. HYOSCYAMINE SULFATE SUBLINGUAL [Suspect]
     Active Substance: HYOSCYAMINE SULFATE
     Indication: DYSPHAGIA
     Route: 060
     Dates: start: 20160822, end: 20160824
  2. SIMVASTATIN. [Concomitant]
     Active Substance: SIMVASTATIN
  3. CALCIUM [Concomitant]
     Active Substance: CALCIUM
  4. FISH OIL [Concomitant]
     Active Substance: FISH OIL
  5. GLUCOPHAGE [Concomitant]
     Active Substance: METFORMIN HYDROCHLORIDE
  6. PROBIOTIC [Concomitant]
     Active Substance: PROBIOTICS NOS
  7. LISINPRIL [Concomitant]
  8. PROLIA [Concomitant]
     Active Substance: DENOSUMAB
  9. PRILOSEC [Concomitant]
     Active Substance: OMEPRAZOLE MAGNESIUM
  10. MULTI VITAMIN [Concomitant]
     Active Substance: VITAMINS

REACTIONS (5)
  - Hyperhidrosis [None]
  - Nausea [None]
  - Vision blurred [None]
  - Gait disturbance [None]
  - Disorientation [None]

NARRATIVE: CASE EVENT DATE: 20160824
